FAERS Safety Report 4397326-7 (Version None)
Quarter: 2004Q3

REPORT INFORMATION
  Report Type: 
  Country: None (occurrence: None)
  Receive Date: 20040714
  Receipt Date: 20040615
  Transmission Date: 20050211
  Serious: Yes (Other)
  Sender: FDA-Public Use
  Company Number: JP-GLAXOSMITHKLINE-B0335959A

PATIENT
  Age: 46 Year
  Sex: Female

DRUGS (3)
  1. VALTREX [Suspect]
     Indication: HERPES ZOSTER
     Dosage: 1000MG THREE TIMES PER DAY
     Route: 048
     Dates: start: 20040612
  2. EXCELASE [Concomitant]
     Dosage: 1TAB THREE TIMES PER DAY
     Route: 048
  3. TOPALGIC ( JAPAN ) [Concomitant]
     Route: 061

REACTIONS (4)
  - DEPRESSED LEVEL OF CONSCIOUSNESS [None]
  - DIZZINESS [None]
  - MALAISE [None]
  - SOMNOLENCE [None]
